FAERS Safety Report 5615069-6 (Version None)
Quarter: 2008Q1

REPORT INFORMATION
  Report Type: 
  Country: None (occurrence: None)
  Receive Date: 20080205
  Receipt Date: 20080205
  Transmission Date: 20080703
  Serious: Yes (Death)
  Sender: FDA-Public Use
  Company Number: None

PATIENT
  Age: 54 Year
  Sex: Female
  Weight: 54.4316 kg

DRUGS (1)
  1. METHADONE HCL [Suspect]
     Indication: PAIN
     Dates: start: 20000101, end: 20071201

REACTIONS (1)
  - DEATH [None]
